FAERS Safety Report 12037521 (Version 1)
Quarter: 2016Q1

REPORT INFORMATION
  Report Type: Spontaneous
  Country: FR (occurrence: FR)
  Receive Date: 20160208
  Receipt Date: 20160208
  Transmission Date: 20160526
  Serious: Yes (Hospitalization)
  Sender: FDA-Public Use
  Company Number: PHHY2016FR013693

PATIENT
  Sex: Male

DRUGS (18)
  1. KETOCONAZOLE. [Suspect]
     Active Substance: KETOCONAZOLE
     Dosage: 800 MG, QD
     Route: 048
     Dates: start: 201511, end: 201511
  2. KETOCONAZOLE. [Suspect]
     Active Substance: KETOCONAZOLE
     Dosage: 200 MG, QID (4 TIMES PER DAY)
     Route: 048
     Dates: start: 20151124
  3. KETOCONAZOLE. [Suspect]
     Active Substance: KETOCONAZOLE
     Dosage: 1000 MG, QD
     Route: 048
     Dates: start: 20160101
  4. STAGID [Concomitant]
     Active Substance: METFORMIN PAMOATE
     Indication: PRODUCT USED FOR UNKNOWN INDICATION
     Dosage: 2 DF, QD
     Route: 065
  5. DIFFU K [Concomitant]
     Active Substance: POTASSIUM CHLORIDE
     Indication: PRODUCT USED FOR UNKNOWN INDICATION
     Dosage: 600 MG, QD
     Route: 065
  6. SIGNIFOR [Suspect]
     Active Substance: PASIREOTIDE
     Dosage: 0.9 MG, BID
     Route: 058
     Dates: start: 20151124, end: 20151222
  7. KETOCONAZOLE. [Suspect]
     Active Substance: KETOCONAZOLE
     Indication: PITUITARY TUMOUR BENIGN
     Dosage: 600 MG, QD
     Route: 048
     Dates: start: 20150926, end: 201511
  8. NOVOMIX [Concomitant]
     Active Substance: INSULIN ASPART
     Indication: PRODUCT USED FOR UNKNOWN INDICATION
     Route: 065
  9. LASILIX [Concomitant]
     Active Substance: FUROSEMIDE
     Indication: PRODUCT USED FOR UNKNOWN INDICATION
     Dosage: 40 MG, QD
     Route: 065
  10. LEVOTHYROX [Concomitant]
     Active Substance: LEVOTHYROXINE
     Indication: PRODUCT USED FOR UNKNOWN INDICATION
     Dosage: 75 UG, QD
     Route: 065
  11. COVERSYL//PERINDOPRIL ARGININE [Concomitant]
     Active Substance: PERINDOPRIL ARGININE
     Indication: PRODUCT USED FOR UNKNOWN INDICATION
     Dosage: 4 MG, QD
     Route: 065
  12. SIGNIFOR [Suspect]
     Active Substance: PASIREOTIDE
     Indication: PRODUCT USED FOR UNKNOWN INDICATION
     Dosage: 0.6 MG, BID
     Route: 058
     Dates: start: 201511, end: 201511
  13. ZOCOR [Concomitant]
     Active Substance: SIMVASTATIN
     Indication: PRODUCT USED FOR UNKNOWN INDICATION
     Dosage: 40 MG, QD
     Route: 065
  14. KARDEGIC [Concomitant]
     Active Substance: ASPIRIN LYSINE
     Indication: PRODUCT USED FOR UNKNOWN INDICATION
     Dosage: 300 MG, QD
     Route: 065
  15. KETOCONAZOLE. [Suspect]
     Active Substance: KETOCONAZOLE
     Dosage: 800 MG, QD
     Route: 048
  16. NOVONORM [Concomitant]
     Active Substance: REPAGLINIDE
     Indication: PRODUCT USED FOR UNKNOWN INDICATION
     Dosage: 4 MG, QD
     Route: 065
  17. KETOCONAZOLE. [Suspect]
     Active Substance: KETOCONAZOLE
     Dosage: 1000 MG, QD
     Route: 048
     Dates: start: 201511, end: 201511
  18. KETOCONAZOLE. [Suspect]
     Active Substance: KETOCONAZOLE
     Dosage: 800 MG, QD
     Route: 048
     Dates: start: 201511, end: 201511

REACTIONS (1)
  - Adrenal insufficiency [Recovered/Resolved]
